FAERS Safety Report 4709216-8 (Version None)
Quarter: 2005Q3

REPORT INFORMATION
  Report Type: 
  Country: None (occurrence: None)
  Receive Date: 20050707
  Receipt Date: 20050707
  Transmission Date: 20060218
  Serious: Yes (Hospitalization, Other)
  Sender: FDA-Public Use
  Company Number: None

PATIENT
  Sex: Female
  Weight: 66.7 kg

DRUGS (4)
  1. EPIRUBICIN [Suspect]
     Indication: GASTRIC CANCER
     Dosage: 50 MG/M2 IV OVER 15 MIN ON DAY #1
     Dates: start: 20050418
  2. CISPLATIN [Suspect]
     Dosage: 60 MG/M2 OVER 1 HR IV ON DAY#1
  3. FLUOROURACIL [Suspect]
     Dosage: 200 MG/M2/DAYX21 DAYS
  4. NSS [Concomitant]

REACTIONS (4)
  - CATHETER SEPSIS [None]
  - ENTEROCOCCAL SEPSIS [None]
  - HAEMOGLOBIN DECREASED [None]
  - INFUSION RELATED REACTION [None]
